FAERS Safety Report 11952172 (Version 1)
Quarter: 2016Q1

REPORT INFORMATION
  Report Type: Spontaneous
  Country: US (occurrence: None)
  Receive Date: 20160122
  Receipt Date: 20160122
  Transmission Date: 20160526
  Serious: Yes (Other)
  Sender: FDA-Public Use
  Company Number: None

PATIENT
  Age: 6 Year
  Sex: Male
  Weight: 23.59 kg

DRUGS (1)
  1. METHYLPHENIDATE 18MG [Suspect]
     Active Substance: METHYLPHENIDATE
     Indication: EDUCATIONAL PROBLEM
     Route: 048
     Dates: start: 20160115, end: 20160121

REACTIONS (2)
  - Tachycardia [None]
  - Flushing [None]

NARRATIVE: CASE EVENT DATE: 20160121
